FAERS Safety Report 14334244 (Version 2)
Quarter: 2018Q2

REPORT INFORMATION
  Report Type: Spontaneous
  Country: FR (occurrence: FR)
  Receive Date: 20171228
  Receipt Date: 20180404
  Transmission Date: 20180711
  Serious: Yes (Hospitalization)
  Sender: FDA-Public Use
  Company Number: FR-PURDUE PHARMA-GBR-2017-0051856

PATIENT
  Age: 58 Year
  Sex: Male

DRUGS (10)
  1. ALCOHOL. [Suspect]
     Active Substance: ALCOHOL
     Indication: PRODUCT USED FOR UNKNOWN INDICATION
     Dosage: 20 DF, DAILY
     Route: 048
  2. NALTREXONE [Interacting]
     Active Substance: NALTREXONE
     Dosage: 50 MG, UNK
     Route: 065
  3. ESCITALOPRAM [Concomitant]
     Active Substance: ESCITALOPRAM OXALATE
     Dosage: 10 MG, DAILY
     Route: 065
  4. NALTREXONE [Interacting]
     Active Substance: NALTREXONE
     Indication: PRODUCT USED FOR UNKNOWN INDICATION
     Dosage: 50 MG, SINGLE
     Route: 065
  5. CANNABIS SATIVA [Suspect]
     Active Substance: CANNABIS SATIVA SUBSP. SATIVA FLOWERING TOP
     Indication: PRODUCT USED FOR UNKNOWN INDICATION
     Dosage: UNK, PRN
     Route: 055
  6. ESCITALOPRAM [Concomitant]
     Active Substance: ESCITALOPRAM OXALATE
     Dosage: UNK
     Route: 065
  7. NON-PMN BUPRENORPHINE [Suspect]
     Active Substance: BUPRENORPHINE
     Indication: ALCOHOL DETOXIFICATION
     Dosage: 8 MG, UNK
     Route: 065
  8. NON-PMN BUPRENORPHINE [Interacting]
     Active Substance: BUPRENORPHINE
     Dosage: 8 MG, UNK
     Route: 065
  9. NON-PMN BUPRENORPHINE [Interacting]
     Active Substance: BUPRENORPHINE
     Dosage: 16 MG, DAILY
     Route: 065
  10. DIAZEPAM. [Concomitant]
     Active Substance: DIAZEPAM
     Dosage: 20 MG, DAILY

REACTIONS (10)
  - Drug administration error [Unknown]
  - Tachycardia [Recovered/Resolved]
  - Rhinorrhoea [Recovered/Resolved]
  - Mydriasis [Recovered/Resolved]
  - Drug withdrawal syndrome [Recovered/Resolved]
  - Confusional state [Recovered/Resolved]
  - Agitation [Recovered/Resolved]
  - Blood pressure increased [Recovered/Resolved]
  - Myalgia [Recovered/Resolved]
  - Drug interaction [Unknown]
